FAERS Safety Report 6247326-7 (Version None)
Quarter: 2009Q2

REPORT INFORMATION
  Report Type: 
  Country: None (occurrence: None)
  Receive Date: 20090624
  Receipt Date: 20090624
  Transmission Date: 20091009
  Serious: No
  Sender: FDA-Public Use
  Company Number: None

PATIENT
  Age: 82 Year
  Sex: Male
  Weight: 103 kg

DRUGS (8)
  1. CAPECITABINE [Suspect]
     Indication: OESOPHAGEAL ADENOCARCINOMA
     Dosage: 1000MG/M2 PO BID
     Route: 048
     Dates: start: 20090416, end: 20090503
  2. OXALIPLATIN [Suspect]
     Indication: OESOPHAGEAL ADENOCARCINOMA
     Dosage: 85MG/M2 Q2W
     Dates: start: 20090416, end: 20090430
  3. FLUOXETINE HCL [Concomitant]
  4. GLIPIZIDE [Concomitant]
  5. FUROSEMIDE [Concomitant]
  6. METOLAZONE [Concomitant]
  7. OMEPRAZOLE [Concomitant]
  8. VALSARTIN [Concomitant]

REACTIONS (3)
  - ACIDOSIS [None]
  - BLOOD POTASSIUM DECREASED [None]
  - URINE OUTPUT DECREASED [None]
